FAERS Safety Report 21017861 (Version 3)
Quarter: 2022Q3

REPORT INFORMATION
  Report Type: Spontaneous
  Country: US (occurrence: None)
  Receive Date: 20220628
  Receipt Date: 20220822
  Transmission Date: 20221027
  Serious: Yes (Death, Hospitalization, Other)
  Sender: FDA-Public Use
  Company Number: 2022A232317

PATIENT
  Sex: Female

DRUGS (1)
  1. SAPHNELO [Suspect]
     Active Substance: ANIFROLUMAB-FNIA
     Indication: Systemic lupus erythematosus
     Dosage: 300 MG/2 ML
     Route: 042
     Dates: end: 20220516

REACTIONS (5)
  - COVID-19 [Fatal]
  - Herpes simplex hepatitis [Fatal]
  - Acute hepatic failure [Fatal]
  - Pleural effusion [Unknown]
  - Systemic lupus erythematosus [Unknown]
